FAERS Safety Report 6520018-2 (Version None)
Quarter: 2009Q4

REPORT INFORMATION
  Report Type: 
  Country: None (occurrence: None)
  Receive Date: 20091229
  Receipt Date: 20091223
  Transmission Date: 20100525
  Serious: Yes (Other)
  Sender: FDA-Public Use
  Company Number: KR-JNJFOC-20091101603

PATIENT
  Age: 45 Year
  Sex: Male

DRUGS (2)
  1. FAMOTIDINE [Suspect]
  2. FAMOTIDINE [Suspect]
     Indication: DUODENAL ULCER
     Dosage: 6 WEEKS

REACTIONS (1)
  - HEPATITIS [None]
